FAERS Safety Report 5721481-7 (Version None)
Quarter: 2008Q2

REPORT INFORMATION
  Report Type: 
  Country: None (occurrence: None)
  Receive Date: 20080428
  Receipt Date: 20080428
  Transmission Date: 20081010
  Serious: Yes (Hospitalization)
  Sender: FDA-Public Use
  Company Number: None

PATIENT

DRUGS (2)
  1. CELEBREX [Suspect]
  2. ZOLOFT [Suspect]

REACTIONS (1)
  - DIARRHOEA [None]
